FAERS Safety Report 10181394 (Version 2)
Quarter: 2014Q2

REPORT INFORMATION
  Report Type: Spontaneous
  Country: CA (occurrence: CA)
  Receive Date: 20140519
  Receipt Date: 20140629
  Transmission Date: 20141212
  Serious: Yes (Other)
  Sender: FDA-Public Use
  Company Number: CA-BRISTOL-MYERS SQUIBB COMPANY-20743407

PATIENT
  Age: 73 Year
  Sex: Female

DRUGS (2)
  1. ONGLYZA TABS 5 MG [Suspect]
     Dates: start: 201309
  2. SIMVASTATIN [Suspect]

REACTIONS (3)
  - Breast cancer [Unknown]
  - Blood creatinine increased [Unknown]
  - Myalgia [Unknown]
